FAERS Safety Report 5098989-3 (Version None)
Quarter: 2006Q3

REPORT INFORMATION
  Report Type: 
  Country: None (occurrence: None)
  Receive Date: 20060731
  Receipt Date: 20050906
  Transmission Date: 20061208
  Serious: Yes (Hospitalization)
  Sender: FDA-Public Use
  Company Number: 217495

PATIENT
  Age: 65 Year
  Sex: Male
  Weight: 63.5 kg

DRUGS (9)
  1. RITUXAN [Suspect]
     Indication: NON-HODGKIN'S LYMPHOMA
     Dosage: 700 MG, SINGLE, INTRAVENOUS
     Route: 042
     Dates: start: 20041209
  2. CYCLOPHOSPHAMIDE [Concomitant]
  3. DOXORUBICIN HCL [Concomitant]
  4. VINCRISTINE [Concomitant]
  5. PREDNISONE TAB [Concomitant]
  6. ONDANSETRON [Concomitant]
  7. NEULASTA [Concomitant]
  8. DEXAMETHASONE TAB [Concomitant]
  9. FAMOTIDINE [Concomitant]

REACTIONS (1)
  - PEMPHIGOID [None]
